FAERS Safety Report 24580069 (Version 1)
Quarter: 2024Q4

REPORT INFORMATION
  Report Type: Spontaneous
  Country: US (occurrence: None)
  Receive Date: 20241104
  Receipt Date: 20241104
  Transmission Date: 20250115
  Serious: Yes (Life-Threatening, Hospitalization)
  Sender: Public
  Company Number: None

PATIENT
  Age: 57 Year
  Sex: Male
  Weight: 267 kg

DRUGS (1)
  1. PACLITAXEL [Suspect]
     Active Substance: PACLITAXEL
     Indication: Neoplasm malignant
     Dosage: OTHER FREQUENCY : ONCE;?
     Route: 042
     Dates: start: 20240723, end: 20240723

REACTIONS (8)
  - Erythema multiforme [None]
  - Rash [None]
  - Pain in extremity [None]
  - Peripheral swelling [None]
  - Erythema [None]
  - Blister [None]
  - Infusion related reaction [None]
  - Hypoaesthesia [None]

NARRATIVE: CASE EVENT DATE: 20060101
